FAERS Safety Report 7636700-X (Version None)
Quarter: 2011Q3

REPORT INFORMATION
  Report Type: 
  Country: None (occurrence: None)
  Receive Date: 20110726
  Receipt Date: 20110601
  Transmission Date: 20111222
  Serious: No
  Sender: FDA-Public Use
  Company Number: US-BAYER-2011-047912

PATIENT
  Age: 51 Year
  Sex: Male
  Weight: 104 kg

DRUGS (1)
  1. ALEVE (CAPLET) [Suspect]
     Indication: MYALGIA
     Dosage: 2 DF, TID
     Route: 048
     Dates: start: 20110601, end: 20110601

REACTIONS (1)
  - NO ADVERSE EVENT [None]
